FAERS Safety Report 4648665-3 (Version None)
Quarter: 2005Q2

REPORT INFORMATION
  Report Type: 
  Country: None (occurrence: None)
  Receive Date: 20050427
  Receipt Date: 20050407
  Transmission Date: 20051028
  Serious: Yes (Disabling)
  Sender: FDA-Public Use
  Company Number: DE_050415625

PATIENT
  Sex: Female

DRUGS (3)
  1. YENTREVE (DULOXETINE HYDROCHLORIDE) [Suspect]
     Indication: STRESS INCONTINENCE
  2. TREVILOR (VENLAFAXINE HYDROCHLORIDE) [Concomitant]
  3. TRICYCLIC ANTIDEPRESSANT [Concomitant]

REACTIONS (1)
  - BLINDNESS UNILATERAL [None]
